FAERS Safety Report 6785524-4 (Version None)
Quarter: 2010Q2

REPORT INFORMATION
  Report Type: 
  Country: None (occurrence: None)
  Receive Date: 20100623
  Receipt Date: 20100614
  Transmission Date: 20101027
  Serious: Yes (Other)
  Sender: FDA-Public Use
  Company Number: GB-B.I. PHARMACEUTICALS,INC./RIDGEFIELD-2010-BP-06991YA

PATIENT
  Age: 72 Year
  Sex: Male

DRUGS (5)
  1. TAMSULOSIN HCL [Suspect]
     Indication: BENIGN PROSTATIC HYPERPLASIA
     Route: 048
     Dates: start: 20100519, end: 20100526
  2. ASPIRIN [Concomitant]
  3. OMEPRAZOLE [Concomitant]
  4. QUININE SULPHATE (QUININE SULFATE) [Concomitant]
  5. RAMIPRIL [Concomitant]

REACTIONS (2)
  - HYPOTENSION [None]
  - POLLAKIURIA [None]
